FAERS Safety Report 7168674 (Version 2)
Quarter: 2016Q2

REPORT INFORMATION
  Report Type: Spontaneous
  Country: None (occurrence: None)
  Receive Date: 20091023
  Receipt Date: 20160520
  Transmission Date: 20160815
  Serious: Yes (Other)
  Sender: FDA-Public Use
  Company Number: 2009-00010

PATIENT
  Sex: Female

DRUGS (1)
  1. NEUTROGENA OIL-FREE ACNE WASH DAILY SCRUB [Suspect]
     Active Substance: SALICYLIC ACID
     Indication: ACNE
     Dosage: TOPICAL
     Route: 061

REACTIONS (2)
  - Cellulitis [None]
  - Expired product administered [None]
